FAERS Safety Report 10186490 (Version 2)
Quarter: 2014Q2

REPORT INFORMATION
  Report Type: Report from Study
  Country: JP (occurrence: JP)
  Receive Date: 20140521
  Receipt Date: 20140521
  Transmission Date: 20141212
  Serious: Yes (Hospitalization)
  Sender: FDA-Public Use
  Company Number: JP-PFIZER INC-2011157707

PATIENT
  Age: 79 Year
  Sex: Male

DRUGS (5)
  1. AXITINIB [Suspect]
     Indication: HEPATOCELLULAR CARCINOMA
     Dosage: 5 MG, 2X/DAY
     Route: 048
     Dates: start: 20110408, end: 20110418
  2. AXITINIB [Suspect]
     Dosage: 3 MG, 2X/DAY
     Route: 048
     Dates: start: 20110419, end: 20110505
  3. AXITINIB [Suspect]
     Dosage: 2 MG, 2X/DAY
     Route: 048
     Dates: start: 20110506, end: 20110530
  4. AXITINIB [Suspect]
     Dosage: 1 MG, 2X/DAY
     Route: 048
     Dates: start: 20110531, end: 20110627
  5. AXITINIB [Suspect]
     Dosage: 2 MG, 2X/DAY
     Route: 048
     Dates: start: 20110628, end: 20110711

REACTIONS (1)
  - Renal impairment [Recovered/Resolved]
